FAERS Safety Report 8309724-7 (Version None)
Quarter: 2012Q2

REPORT INFORMATION
  Report Type: 
  Country: None (occurrence: None)
  Receive Date: 20120423
  Receipt Date: 20120411
  Transmission Date: 20120825
  Serious: Yes (Other)
  Sender: FDA-Public Use
  Company Number: MCA-N-12-029

PATIENT
  Age: 3 Day
  Sex: Male

DRUGS (2)
  1. LEVETIRACETAM [Suspect]
     Indication: EPILEPSY
  2. LAMOTRIGINE [Concomitant]

REACTIONS (3)
  - OXYGEN SATURATION DECREASED [None]
  - FOETAL EXPOSURE DURING PREGNANCY [None]
  - BRADYCARDIA [None]
